FAERS Safety Report 23588768 (Version 1)
Quarter: 2024Q1

REPORT INFORMATION
  Report Type: Other
  Country: ET (occurrence: None)
  Receive Date: 20240303
  Receipt Date: 20240303
  Transmission Date: 20240410
  Serious: Yes (Death, Hospitalization)
  Sender: FDA-Public Use
  Company Number: ET-Square-000206

PATIENT
  Age: 68 Year
  Sex: Female

DRUGS (8)
  1. CALCIUM GLUCONATE [Suspect]
     Active Substance: CALCIUM GLUCONATE
     Indication: BRASH syndrome
     Dosage: 10 MLS OF 10 % CALCIUM GLUCONATE SLOWLY OVER 20 MINUTES MIXED IN 100 ML OF GLUCOSE 5%
  2. SODIUM CHLORIDE [Suspect]
     Active Substance: SODIUM CHLORIDE
     Indication: BRASH syndrome
     Dosage: INTRAVENOUS BOLUS OF 30ML/KG OF SODIUM ?CHLORIDE 0.9%
  3. ATROPINE [Suspect]
     Active Substance: ATROPINE\ATROPINE SULFATE
     Indication: BRASH syndrome
     Dosage: 03 DOSES OF 1 MG ATROPINE EVERY 5 MINUTES
  4. INSULIN NOS [Suspect]
     Active Substance: INSULIN NOS
     Indication: BRASH syndrome
     Dosage: 10 INTERNATIONAL UNITS WITH 25G OF GLUCOSE OVER 15 MINUTES
  5. DOPAMINE [Suspect]
     Active Substance: DOPAMINE HYDROCHLORIDE
     Indication: BRASH syndrome
     Dosage: 5 MCG/KG/MIN BY DILUTING 400MG DOPAMINE IN 250ML
  6. NOREPINEPHRINE [Suspect]
     Active Substance: NOREPINEPHRINE\NOREPINEPHRINE BITARTRATE
     Indication: BRASH syndrome
     Dosage: 0.01 MCG/KG/MIN
  7. DOPAMINE [Suspect]
     Active Substance: DOPAMINE HYDROCHLORIDE
     Indication: BRASH syndrome
     Dosage: ESCALATED EVERY 10 MINUTES TILL 20 MCG/KG/MIN
  8. NOREPINEPHRINE [Suspect]
     Active Substance: NOREPINEPHRINE\NOREPINEPHRINE BITARTRATE
     Indication: BRASH syndrome
     Dosage: ESCALATED TO ITS MAXIMUM DOSE 2 MCG/KG/MIN

REACTIONS (1)
  - Treatment failure [Fatal]
